FAERS Safety Report 6286565-6 (Version None)
Quarter: 2009Q3

REPORT INFORMATION
  Report Type: 
  Country: None (occurrence: None)
  Receive Date: 20090727
  Receipt Date: 20090727
  Transmission Date: 20100115
  Serious: Yes (Other)
  Sender: FDA-Public Use
  Company Number: None

PATIENT
  Sex: Male
  Weight: 68.9467 kg

DRUGS (1)
  1. POT CITRATE 1080 MG TAB RISI GENERIC FOR UROCIT-K- 10 MEQ [Suspect]
     Indication: NEPHROLITHIASIS
     Dosage: 1080 MG TWICE DAILY ORAL
     Route: 048
     Dates: start: 20090622, end: 20090706

REACTIONS (3)
  - GENERALISED OEDEMA [None]
  - PRURITUS GENERALISED [None]
  - RASH GENERALISED [None]
